FAERS Safety Report 4523559-2 (Version None)
Quarter: 2004Q4

REPORT INFORMATION
  Report Type: 
  Country: None (occurrence: None)
  Receive Date: 20041210
  Receipt Date: 20041129
  Transmission Date: 20050328
  Serious: Yes (Other)
  Sender: FDA-Public Use
  Company Number: US-ROCHE-387823

PATIENT
  Age: 58 Year
  Sex: Male
  Weight: 78.9 kg

DRUGS (3)
  1. PEGASYS [Suspect]
     Route: 058
     Dates: start: 20040611, end: 20041117
  2. COPEGUS [Suspect]
     Dosage: 3 X AM, 2 X PM
     Route: 048
     Dates: start: 20040611, end: 20041117
  3. ASPIRIN [Concomitant]

REACTIONS (4)
  - CEREBROVASCULAR ACCIDENT [None]
  - DYSPNOEA [None]
  - HEADACHE [None]
  - OPTIC ISCHAEMIC NEUROPATHY [None]
